FAERS Safety Report 14044108 (Version 1)
Quarter: 2017Q4

REPORT INFORMATION
  Report Type: Report from Study
  Country: US (occurrence: US)
  Receive Date: 20171004
  Receipt Date: 20171004
  Transmission Date: 20180321
  Serious: Yes (Hospitalization)
  Sender: FDA-Public Use
  Company Number: US-PFIZER INC-2017413709

PATIENT
  Age: 73 Year
  Sex: Female

DRUGS (49)
  1. BIOTIN [Concomitant]
     Active Substance: BIOTIN
     Indication: VITAMIN SUPPLEMENTATION
     Dosage: 10000 MCG, 1 IN 1 D
     Route: 048
     Dates: start: 2007
  2. HUMALOG [Concomitant]
     Active Substance: INSULIN LISPRO
     Indication: TYPE 2 DIABETES MELLITUS
     Dosage: TID SLIDING SCALE. (100 IU)
     Route: 058
     Dates: start: 2002
  3. ZANTAC [Concomitant]
     Active Substance: RANITIDINE HYDROCHLORIDE
     Dosage: 150 MG, 1 IN 1 D
     Route: 048
     Dates: start: 20170306
  4. MAGNESIUM SULFATE. [Concomitant]
     Active Substance: MAGNESIUM SULFATE
     Indication: HYPOMAGNESAEMIA
     Dosage: 4 GM, ONCE
     Route: 042
     Dates: start: 20170227, end: 20170227
  5. ALLOPURINOL. [Concomitant]
     Active Substance: ALLOPURINOL
     Indication: TUMOUR LYSIS SYNDROME
     Dosage: 300 MG, 1 IN 1 D
     Route: 048
     Dates: start: 20170228
  6. LASIX [Concomitant]
     Active Substance: FUROSEMIDE
     Indication: CARDIAC FAILURE CONGESTIVE
     Dosage: 40 MG, 1 IN 1 D
     Route: 048
     Dates: start: 2013, end: 20170310
  7. POTASSIUM CHLORIDE. [Concomitant]
     Active Substance: POTASSIUM CHLORIDE
     Indication: HYPOKALAEMIA
     Dosage: 60 MILLIEQUIVALENTS, ONCE
     Route: 042
     Dates: start: 20170227, end: 20170227
  8. PHENYLEPHRINE [Concomitant]
     Active Substance: PHENYLEPHRINE\PHENYLEPHRINE HYDROCHLORIDE
     Indication: HAEMORRHOIDS
     Dosage: 1 APPLICATION, AS REQUIRED
     Route: 054
     Dates: start: 20170303
  9. ALLOPURINOL. [Concomitant]
     Active Substance: ALLOPURINOL
     Indication: PROPHYLAXIS
  10. LASIX [Concomitant]
     Active Substance: FUROSEMIDE
     Indication: OEDEMA
  11. PROTONIX [Concomitant]
     Active Substance: PANTOPRAZOLE SODIUM
     Indication: GASTROOESOPHAGEAL REFLUX DISEASE
     Dosage: 80 MG (40 MG, 2 IN 1 D)
     Route: 048
     Dates: start: 2013, end: 20170309
  12. RANEXA [Concomitant]
     Active Substance: RANOLAZINE
     Indication: ANGINA PECTORIS
     Dosage: 2000 MG (1000 MG, 2 IN 1 D)
     Route: 048
     Dates: start: 2008
  13. POTASSIUM CHLORIDE. [Concomitant]
     Active Substance: POTASSIUM CHLORIDE
     Dosage: 40 MILLIEQUIVALENTS (20 MILLIEQUIVALENTS, 2 IN 1 D)
     Route: 048
     Dates: start: 20170306
  14. ZOFRAN [Concomitant]
     Active Substance: ONDANSETRON HYDROCHLORIDE
     Indication: NAUSEA
     Dosage: 8 MG, AS REQUIRED
     Route: 060
     Dates: start: 2016, end: 20170227
  15. LANTUS [Concomitant]
     Active Substance: INSULIN GLARGINE
     Dosage: 20 UNITS QD (100 IU)
     Route: 058
     Dates: start: 20170302, end: 20170306
  16. LEXAPRO [Concomitant]
     Active Substance: ESCITALOPRAM OXALATE
     Indication: ANXIETY
     Dosage: 10 MG, 1 IN 1 D
     Route: 048
     Dates: start: 2008
  17. LEXAPRO [Concomitant]
     Active Substance: ESCITALOPRAM OXALATE
     Indication: PANIC DISORDER
  18. TYLENOL [Concomitant]
     Active Substance: ACETAMINOPHEN
     Indication: ARTHRITIS
  19. FENTANYL. [Concomitant]
     Active Substance: FENTANYL
     Indication: BIOPSY BONE MARROW
     Dosage: TWICE (50 MCG)
     Route: 042
     Dates: start: 20170228, end: 20170228
  20. CYTARABINE. [Suspect]
     Active Substance: CYTARABINE
     Indication: ACUTE MYELOID LEUKAEMIA
     Dosage: UNK
     Route: 058
     Dates: start: 20170301, end: 20170306
  21. ATORVASTATIN [Concomitant]
     Active Substance: ATORVASTATIN
     Indication: HYPERLIPIDAEMIA
     Dosage: 40 MG, 1 IN 1 D
     Route: 048
     Dates: start: 2007
  22. VENETOCLAX. [Suspect]
     Active Substance: VENETOCLAX
     Dosage: 400 MG, 1 IN 1 D
     Route: 048
     Dates: start: 20170303, end: 20170303
  23. LANTUS [Concomitant]
     Active Substance: INSULIN GLARGINE
     Indication: TYPE 2 DIABETES MELLITUS
     Dosage: 40 UNITS EVERY MORNING (100 IU,1 IN 1 D)
     Route: 058
     Dates: start: 2002, end: 20170302
  24. ZANTAC [Concomitant]
     Active Substance: RANITIDINE HYDROCHLORIDE
     Indication: GASTROOESOPHAGEAL REFLUX DISEASE
     Dosage: 150 MG, 1 IN 1 D
     Route: 048
     Dates: start: 2013, end: 20170227
  25. PEPCID [Concomitant]
     Active Substance: FAMOTIDINE
     Indication: GASTROOESOPHAGEAL REFLUX DISEASE
     Dosage: 20 MG,1 IN 1 D
     Route: 048
     Dates: start: 20170227, end: 20170306
  26. MAGNESIUM SULFATE. [Concomitant]
     Active Substance: MAGNESIUM SULFATE
     Indication: PROPHYLAXIS
     Dosage: 1-2 G, AS REQUIRED
     Route: 042
     Dates: start: 20170303, end: 20170306
  27. VENETOCLAX. [Suspect]
     Active Substance: VENETOCLAX
     Indication: ACUTE MYELOID LEUKAEMIA
     Dosage: 100 MG, 1 IN 1 D
     Route: 048
     Dates: start: 20170301, end: 20170301
  28. VENETOCLAX. [Suspect]
     Active Substance: VENETOCLAX
     Dosage: 200 MG, 1 IN 1 D
     Route: 048
     Dates: start: 20170302, end: 20170302
  29. ALPRAZOLAM. [Concomitant]
     Active Substance: ALPRAZOLAM
     Indication: ANXIETY
     Dosage: 0.25 MG, BID PRN
     Route: 048
     Dates: start: 2008, end: 20170314
  30. ALPRAZOLAM. [Concomitant]
     Active Substance: ALPRAZOLAM
     Indication: PANIC DISORDER
  31. FLUTICASONE. [Concomitant]
     Active Substance: FLUTICASONE
     Indication: NASAL CONGESTION
     Dosage: 50 MCG, AS REQUIRED
     Route: 045
     Dates: start: 2002
  32. LANTUS [Concomitant]
     Active Substance: INSULIN GLARGINE
     Dosage: 30 UNIT,1 IN 1 D
     Route: 058
     Dates: start: 20170306, end: 20170315
  33. TYLENOL [Concomitant]
     Active Substance: ACETAMINOPHEN
     Indication: HEADACHE
     Dosage: 650 MG, AS REQUIRED
     Route: 048
     Dates: start: 1960
  34. ACYCLOVIR /00587301/ [Concomitant]
     Active Substance: ACYCLOVIR
     Indication: INFECTION PROPHYLAXIS
     Dosage: 1200 MG (400 MG,3 IN 1 D)
     Route: 048
     Dates: start: 20170228, end: 20170309
  35. ZOFRAN [Concomitant]
     Active Substance: ONDANSETRON HYDROCHLORIDE
     Dosage: 4 MG, AS REQUIRED
     Route: 042
     Dates: start: 20170227, end: 20170306
  36. ZOFRAN [Concomitant]
     Active Substance: ONDANSETRON HYDROCHLORIDE
     Dosage: 30 MINS BEFORE CHEMOTHERAPY (4 MG)
     Route: 048
     Dates: start: 20170306
  37. CEFUROXIME. [Concomitant]
     Active Substance: CEFUROXIME
     Indication: URINARY TRACT INFECTION
     Dosage: 500 MG, 2 IN 1 D
     Route: 048
     Dates: start: 20170228, end: 20170306
  38. HALDOL [Concomitant]
     Active Substance: HALOPERIDOL
     Indication: NAUSEA
     Dosage: 0.5 MG, AS REQUIRED
     Route: 042
     Dates: start: 20170301, end: 20170306
  39. LOPERAMIDE [Concomitant]
     Active Substance: LOPERAMIDE
     Indication: DIARRHOEA
     Dosage: 2 MG, AS REQUIRED
     Route: 048
     Dates: start: 20170303
  40. NORMAL SALINE [Concomitant]
     Active Substance: SODIUM CHLORIDE
     Indication: TUMOUR LYSIS SYNDROME
     Dosage: NORMAL SALINE SOLUTION, 75 CC PER HOUR CONTINUOUS. (TOTAL)
     Route: 042
     Dates: start: 20170228, end: 20170306
  41. NORMAL SALINE [Concomitant]
     Active Substance: SODIUM CHLORIDE
     Indication: PROPHYLAXIS
  42. NORMAL SALINE [Concomitant]
     Active Substance: SODIUM CHLORIDE
     Indication: FLUID REPLACEMENT
  43. ISOSORBIDE MONONITRATE XR [Concomitant]
     Indication: ANGINA PECTORIS
     Dosage: 60 MG,1 IN 1 D
     Route: 048
     Dates: start: 2008
  44. NITROSTAT [Concomitant]
     Active Substance: NITROGLYCERIN
     Indication: ANGINA PECTORIS
     Dosage: PRN Q5 MINS X3. (0.4 MG)
     Route: 060
     Dates: start: 2008
  45. POTASSIUM CHLORIDE. [Concomitant]
     Active Substance: POTASSIUM CHLORIDE
     Indication: PROPHYLAXIS
     Dosage: 20-60 MEQ, AS REQUIRED
     Route: 042
     Dates: start: 20170302, end: 20170306
  46. VERSED [Concomitant]
     Active Substance: MIDAZOLAM HYDROCHLORIDE
     Indication: BIOPSY BONE MARROW
     Dosage: 1 MG, ONCE
     Route: 042
     Dates: start: 20170228, end: 20170228
  47. FLAGYL [Concomitant]
     Active Substance: METRONIDAZOLE\METRONIDAZOLE HYDROCHLORIDE
     Indication: CLOSTRIDIUM DIFFICILE COLITIS
     Dosage: 500 MG, ONCE
     Route: 048
     Dates: start: 20170302, end: 20170302
  48. FLAGYL [Concomitant]
     Active Substance: METRONIDAZOLE\METRONIDAZOLE HYDROCHLORIDE
     Indication: PROPHYLAXIS
  49. FUROSEMIDE. [Concomitant]
     Active Substance: FUROSEMIDE
     Indication: OEDEMA
     Dosage: 20 MG, ONCE
     Route: 042
     Dates: start: 20170303, end: 20170303

REACTIONS (1)
  - Cardiac failure [Recovered/Resolved]

NARRATIVE: CASE EVENT DATE: 20170310
